FAERS Safety Report 25267853 (Version 1)
Quarter: 2025Q2

REPORT INFORMATION
  Report Type: Spontaneous
  Country: US (occurrence: None)
  Receive Date: 20250501
  Receipt Date: 20250501
  Transmission Date: 20250717
  Serious: No
  Sender: FDA-CTU
  Company Number: None

PATIENT

DRUGS (4)
  1. LISINOPRIL [Suspect]
     Active Substance: LISINOPRIL
  2. METOPROLOL [Suspect]
     Active Substance: METOPROLOL
  3. LOVASTATIN [Suspect]
     Active Substance: LOVASTATIN
  4. VERAPAMIL [Suspect]
     Active Substance: VERAPAMIL HYDROCHLORIDE

REACTIONS (4)
  - Abdominal discomfort [None]
  - Peripheral swelling [None]
  - Herpes zoster [None]
  - Encephalitis [None]
